FAERS Safety Report 21749909 (Version 8)
Quarter: 2023Q2

REPORT INFORMATION
  Report Type: Report from Study
  Country: US (occurrence: US)
  Receive Date: 20221219
  Receipt Date: 20230404
  Transmission Date: 20230721
  Serious: Yes (Other)
  Sender: FDA-Public Use
  Company Number: US-GILEAD-2022-0605994

PATIENT
  Sex: Female

DRUGS (5)
  1. AMBRISENTAN [Suspect]
     Active Substance: AMBRISENTAN
     Indication: Pulmonary arterial hypertension
     Dosage: 10 MG, QD
     Route: 065
     Dates: start: 20211022
  2. AMBRISENTAN [Suspect]
     Active Substance: AMBRISENTAN
     Dosage: 10 MG, QD
     Route: 065
     Dates: start: 20211022
  3. UPTRAVI [Suspect]
     Active Substance: SELEXIPAG
     Indication: Product used for unknown indication
     Dosage: 800 MG , BID
     Route: 065
  4. UPTRAVI [Suspect]
     Active Substance: SELEXIPAG
     Dosage: 600 MG , BID
     Route: 065
  5. SILDENAFIL [Concomitant]
     Active Substance: SILDENAFIL

REACTIONS (12)
  - Renal impairment [Unknown]
  - Oral surgery [Recovered/Resolved]
  - Weight decreased [Recovered/Resolved]
  - Decreased appetite [Not Recovered/Not Resolved]
  - Back pain [Recovered/Resolved]
  - Pulmonary arterial pressure decreased [Unknown]
  - Catheterisation cardiac [Unknown]
  - Gingival recession [Not Recovered/Not Resolved]
  - Collagen disorder [Unknown]
  - Insomnia [Unknown]
  - Headache [Recovered/Resolved]
  - Fatigue [Recovered/Resolved]
